FAERS Safety Report 9680688 (Version 2)
Quarter: 2013Q4

REPORT INFORMATION
  Report Type: Spontaneous
  Country: US (occurrence: US)
  Receive Date: 20131111
  Receipt Date: 20131218
  Transmission Date: 20140711
  Serious: No
  Sender: FDA-Public Use
  Company Number: US-VERTEX PHARMACEUTICALS INC-2013-010903

PATIENT
  Age: 61 Year
  Sex: Female
  Weight: 57 kg

DRUGS (3)
  1. INCIVEK [Suspect]
     Indication: HEPATITIS C
     Dosage: 750 MG, TID
     Route: 048
     Dates: start: 20131010
  2. RIBAVIRIN [Suspect]
     Indication: HEPATITIS C
     Dosage: 400 MG AM, 200 MG PM
     Route: 048
     Dates: start: 20131010
  3. PEGASYS [Suspect]
     Indication: HEPATITIS C
     Dosage: 180 ?G, QW
     Route: 058
     Dates: start: 20131010

REACTIONS (3)
  - Anxiety [Recovered/Resolved]
  - Abdominal discomfort [Unknown]
  - Rash maculo-papular [Recovered/Resolved]
